FAERS Safety Report 7365915-3 (Version None)
Quarter: 2011Q1

REPORT INFORMATION
  Report Type: 
  Country: None (occurrence: None)
  Receive Date: 20110322
  Receipt Date: 20100909
  Transmission Date: 20110831
  Serious: Yes (Hospitalization, Other)
  Sender: FDA-Public Use
  Company Number: US-BAYER-201019726NA

PATIENT
  Sex: Female
  Weight: 76 kg

DRUGS (12)
  1. YASMIN [Suspect]
     Route: 048
  2. PROVENTIL [Concomitant]
     Dosage: UNK
     Dates: start: 20071116
  3. LOVENOX [Concomitant]
     Dosage: UNK
     Dates: start: 20071121
  4. AUGMENTIN '125' [Concomitant]
     Indication: BRONCHITIS
     Dosage: UNK
     Dates: start: 20071121
  5. COUMADIN [Concomitant]
  6. ZITHROMAX [Concomitant]
     Dosage: UNK
     Dates: start: 20071116
  7. ZITHROMAX [Concomitant]
     Indication: PNEUMONIA
     Dosage: UNK
     Dates: start: 20071116
  8. PERCOCET [Concomitant]
     Indication: HEADACHE
     Dosage: UNK
     Dates: start: 20071121
  9. MORPHINE [Concomitant]
     Dosage: UNK
     Dates: start: 20080226
  10. YAZ [Suspect]
     Route: 048
  11. HEPARIN [Concomitant]
     Dosage: UNK
     Dates: start: 20071121
  12. DILAUDID [Concomitant]
     Indication: PAIN
     Dosage: UNK
     Dates: start: 20080226

REACTIONS (7)
  - PULMONARY EMBOLISM [None]
  - PAIN IN EXTREMITY [None]
  - CHEST PAIN [None]
  - DYSPNOEA [None]
  - PNEUMONIA [None]
  - COUGH [None]
  - MUSCULOSKELETAL PAIN [None]
